FAERS Safety Report 4376190-6 (Version None)
Quarter: 2004Q2

REPORT INFORMATION
  Report Type: 
  Country: None (occurrence: None)
  Receive Date: 20040607
  Receipt Date: 20040531
  Transmission Date: 20050107
  Serious: Yes (Other)
  Sender: FDA-Public Use
  Company Number: 2004-05-2177

PATIENT
  Sex: Female

DRUGS (1)
  1. NASONEX [Suspect]
     Indication: RHINITIS ALLERGIC
     Dosage: NASAL SPRAY
     Route: 045

REACTIONS (4)
  - NASAL CONGESTION [None]
  - NOCTURNAL DYSPNOEA [None]
  - PAIN [None]
  - SNEEZING [None]
